FAERS Safety Report 7024600-8 (Version None)
Quarter: 2010Q4

REPORT INFORMATION
  Report Type: 
  Country: None (occurrence: None)
  Receive Date: 20101001
  Receipt Date: 20100924
  Transmission Date: 20110411
  Serious: Yes (Other)
  Sender: FDA-Public Use
  Company Number: JP-PFIZER INC-2010121823

PATIENT
  Age: 55 Year
  Sex: Female

DRUGS (5)
  1. LIPITOR [Suspect]
     Indication: HYPERCHOLESTEROLAEMIA
     Dosage: UNK
     Route: 048
     Dates: start: 20100623
  2. LIPITOR [Suspect]
     Dosage: 5 MG, 1X/DAY
     Dates: start: 20100811, end: 20100922
  3. MICARDIS [Suspect]
     Indication: HYPERTENSION
  4. LANTUS [Suspect]
     Indication: DIABETES MELLITUS
     Route: 058
  5. HUMALOG [Suspect]
     Indication: DIABETES MELLITUS
     Route: 058

REACTIONS (1)
  - PANCYTOPENIA [None]
